FAERS Safety Report 9723074 (Version 1)
Quarter: 2013Q4

REPORT INFORMATION
  Report Type: Spontaneous
  Country: US (occurrence: None)
  Receive Date: 20131127
  Receipt Date: 20131127
  Transmission Date: 20140711
  Serious: Yes (Hospitalization)
  Sender: FDA-Public Use
  Company Number: None

PATIENT
  Age: 38 Year
  Sex: Male
  Weight: 86.18 kg

DRUGS (2)
  1. CIPRO [Suspect]
     Indication: DIVERTICULITIS
     Route: 048
     Dates: start: 20130321, end: 20130328
  2. METRONIDAZOLE [Suspect]
     Route: 048

REACTIONS (5)
  - Dyspnoea [None]
  - Chest discomfort [None]
  - Dizziness [None]
  - Dysstasia [None]
  - Abdominal distension [None]
